FAERS Safety Report 22207922 (Version 4)
Quarter: 2023Q4

REPORT INFORMATION
  Report Type: Report from Study
  Country: US (occurrence: US)
  Receive Date: 20230413
  Receipt Date: 20231004
  Transmission Date: 20240109
  Serious: No
  Sender: FDA-Public Use
  Company Number: US-002147023-NVSC2023US085457

PATIENT
  Age: 71 Year
  Sex: Male
  Weight: 80.7 kg

DRUGS (1)
  1. TABRECTA [Suspect]
     Active Substance: CAPMATINIB
     Indication: Product used for unknown indication
     Dosage: 2 DOSAGE FORM, BID
     Route: 048
     Dates: start: 20230414, end: 20230608

REACTIONS (6)
  - Blood glucose decreased [Unknown]
  - Protein total decreased [Unknown]
  - Peripheral swelling [Unknown]
  - Fatigue [Unknown]
  - Decreased appetite [Unknown]
  - Hypoacusis [Unknown]

NARRATIVE: CASE EVENT DATE: 20230622
